FAERS Safety Report 7557343-2 (Version None)
Quarter: 2011Q2

REPORT INFORMATION
  Report Type: 
  Country: None (occurrence: None)
  Receive Date: 20110620
  Receipt Date: 20110615
  Transmission Date: 20111010
  Serious: Yes (Death, Hospitalization)
  Sender: FDA-Public Use
  Company Number: TH-EISAI INC-E7389-01051-CLI-TH

PATIENT
  Sex: Male
  Weight: 38 kg

DRUGS (1)
  1. EPIRUBICIN HYDROCHLORIDE [Suspect]
     Indication: NON-SMALL CELL LUNG CANCER
     Route: 041
     Dates: start: 20101103, end: 20101110

REACTIONS (2)
  - PYREXIA [None]
  - FEBRILE NEUTROPENIA [None]
